FAERS Safety Report 24253114 (Version 1)
Quarter: 2024Q3

REPORT INFORMATION
  Report Type: Spontaneous
  Country: US (occurrence: None)
  Receive Date: 20240824
  Receipt Date: 20240824
  Transmission Date: 20241016
  Serious: Yes (Hospitalization)
  Sender: Public
  Company Number: None

PATIENT
  Sex: Female
  Weight: 53.7 kg

DRUGS (8)
  1. CYCLOPHOSPHAMIDE [Suspect]
     Active Substance: CYCLOPHOSPHAMIDE
     Dates: start: 20240507, end: 20240727
  2. Cytarabine 70mg [Concomitant]
  3. Dasatinib BMS- 70mg [Concomitant]
  4. SPRYCEL [Concomitant]
     Active Substance: DASATINIB
  5. Dexamethasone 160mg [Concomitant]
  6. Doxombicin Hydrochloride 43mg [Concomitant]
  7. Methotrexate 12.5 mg [Concomitant]
  8. VinCRIStine Sulfate 3mg [Concomitant]

REACTIONS (9)
  - Dizziness [None]
  - Fall [None]
  - Femur fracture [None]
  - Stress fracture [None]
  - Comminuted fracture [None]
  - Femur fracture [None]
  - Bone marrow oedema [None]
  - Inappropriate schedule of product administration [None]
  - Therapy interrupted [None]

NARRATIVE: CASE EVENT DATE: 20240819
